FAERS Safety Report 11885689 (Version 1)
Quarter: 2016Q1

REPORT INFORMATION
  Report Type: Spontaneous
  Country: IT (occurrence: IT)
  Receive Date: 20160104
  Receipt Date: 20160104
  Transmission Date: 20160526
  Serious: Yes (Other)
  Sender: FDA-Public Use
  Company Number: IT-AKORN PHARMACEUTICALS-2015AKN00725

PATIENT

DRUGS (1)
  1. RIFAMPIN. [Suspect]
     Active Substance: RIFAMPIN
     Indication: DRUG THERAPY

REACTIONS (1)
  - Drug reaction with eosinophilia and systemic symptoms [Unknown]
